FAERS Safety Report 12460074 (Version 2)
Quarter: 2016Q2

REPORT INFORMATION
  Report Type: Spontaneous
  Country: US (occurrence: US)
  Receive Date: 20160613
  Receipt Date: 20160628
  Transmission Date: 20160815
  Serious: No
  Sender: FDA-Public Use
  Company Number: US-PFIZER INC-2016272863

PATIENT
  Sex: Female

DRUGS (2)
  1. LYRICA [Suspect]
     Active Substance: PREGABALIN
     Indication: ASTHENIA
  2. LYRICA [Suspect]
     Active Substance: PREGABALIN
     Indication: MUSCULOSKELETAL DISCOMFORT
     Dosage: 50 MG, 2X/DAY (7:30 AM AND 7:30 PM)

REACTIONS (8)
  - Product use issue [Unknown]
  - Rash macular [Unknown]
  - Pruritus [Unknown]
  - Herpes zoster [Unknown]
  - Infection parasitic [Unknown]
  - Pain [Recovering/Resolving]
  - Insomnia [Unknown]
  - Blood pressure increased [Unknown]
